FAERS Safety Report 6057433-X (Version None)
Quarter: 2009Q1

REPORT INFORMATION
  Report Type: 
  Country: None (occurrence: None)
  Receive Date: 20090126
  Receipt Date: 20090126
  Transmission Date: 20090719
  Serious: Yes (Other)
  Sender: FDA-Public Use
  Company Number: None

PATIENT
  Age: 34 Year
  Sex: Female
  Weight: 56 kg

DRUGS (1)
  1. MEFLOQUINE 250MG SANDOZ, INC. [Suspect]
     Indication: MALARIA PROPHYLAXIS
     Dosage: 1 TABLET PER WEEK PO
     Route: 048
     Dates: start: 20081012, end: 20081126

REACTIONS (8)
  - ANXIETY [None]
  - DIARRHOEA [None]
  - DIZZINESS [None]
  - FEAR [None]
  - HEADACHE [None]
  - NAUSEA [None]
  - SYNCOPE [None]
  - TINNITUS [None]
